FAERS Safety Report 9603738 (Version 2)
Quarter: 2013Q4

REPORT INFORMATION
  Report Type: Spontaneous
  Country: US (occurrence: US)
  Receive Date: 20131007
  Receipt Date: 20131203
  Transmission Date: 20140711
  Serious: No
  Sender: FDA-Public Use
  Company Number: US-009507513-1309USA009497

PATIENT
  Sex: Female

DRUGS (2)
  1. IMPLANON [Suspect]
     Indication: CONTRACEPTION
     Dosage: 1 UNK, UNK
     Route: 059
     Dates: start: 2007
  2. IMPLANON [Suspect]
     Dosage: 68 MG/ ONE ROD EVERY THREE YEARS
     Route: 059
     Dates: start: 2007

REACTIONS (3)
  - Device difficult to use [Recovered/Resolved]
  - No adverse event [Unknown]
  - Overdose [Unknown]
